FAERS Safety Report 6341551-2 (Version None)
Quarter: 2009Q3

REPORT INFORMATION
  Report Type: 
  Country: None (occurrence: None)
  Receive Date: 20090904
  Receipt Date: 20090831
  Transmission Date: 20100115
  Serious: Yes (Death)
  Sender: FDA-Public Use
  Company Number: CZ-AVENTIS-200919329GDDC

PATIENT
  Age: 62 Year
  Sex: Male
  Weight: 81 kg

DRUGS (12)
  1. LANTUS [Suspect]
     Indication: DIABETES MELLITUS
     Route: 058
     Dates: start: 20090123
  2. APIDRA [Suspect]
     Indication: DIABETES MELLITUS
  3. AUTOPEN INSULIN INJECTION PEN [Suspect]
  4. AUTOPEN INSULIN INJECTION PEN [Suspect]
  5. DIURETICS [Concomitant]
  6. ANTITHROMBOTIC AGENTS [Concomitant]
  7. TRENTAL [Concomitant]
  8. NEURONTIN [Concomitant]
  9. VEROSPIRON [Concomitant]
  10. ALLOPURINOL [Concomitant]
  11. HUMULIN N [Concomitant]
  12. HUMULIN R [Concomitant]

REACTIONS (1)
  - CARDIAC DISORDER [None]
